FAERS Safety Report 16797802 (Version 1)
Quarter: 2019Q3

REPORT INFORMATION
  Report Type: Spontaneous
  Country: IT (occurrence: IT)
  Receive Date: 20190912
  Receipt Date: 20190912
  Transmission Date: 20191005
  Serious: Yes (Other)
  Sender: FDA-Public Use
  Company Number: IT-TEVA-2019-IT-1104960

PATIENT
  Age: 72 Year
  Sex: Female
  Weight: 77 kg

DRUGS (3)
  1. FLUOXETINE [Suspect]
     Active Substance: FLUOXETINE HYDROCHLORIDE
     Indication: DEPRESSION
     Dosage: 20 MG
     Route: 048
     Dates: start: 19981231, end: 20190701
  2. PREGABALIN. [Concomitant]
     Active Substance: PREGABALIN
  3. BISOPROLOL FUMARATE. [Concomitant]
     Active Substance: BISOPROLOL FUMARATE

REACTIONS (1)
  - Hallucination, visual [Recovered/Resolved with Sequelae]

NARRATIVE: CASE EVENT DATE: 20190501
